FAERS Safety Report 7548826-X (Version None)
Quarter: 2011Q2

REPORT INFORMATION
  Report Type: 
  Country: None (occurrence: None)
  Receive Date: 20110525
  Receipt Date: 20110203
  Transmission Date: 20111010
  Serious: No
  Sender: FDA-Public Use
  Company Number: 322910

PATIENT
  Age: 68 Year
  Sex: Female

DRUGS (3)
  1. IMITREX /01044801/ (SUMATRIPTAN) [Concomitant]
  2. VICTOZA [Suspect]
     Indication: TYPE 2 DIABETES MELLITUS
     Dosage: SUBCUTANEOUS
     Route: 058
  3. GLUCOPHAGE [Concomitant]

REACTIONS (4)
  - MIGRAINE [None]
  - WEIGHT DECREASED [None]
  - CONSTIPATION [None]
  - BLOOD GLUCOSE DECREASED [None]
